FAERS Safety Report 8493338 (Version 3)
Quarter: 2014Q3

REPORT INFORMATION
  Report Type: Spontaneous
  Country: ES (occurrence: ES)
  Receive Date: 20120404
  Receipt Date: 20140729
  Transmission Date: 20150326
  Serious: Yes (Hospitalization, Other)
  Sender: FDA-Public Use
  Company Number: ES-RANBAXY-2012RR-55101

PATIENT
  Sex: Female

DRUGS (2)
  1. AMOXICILLIN/CLAVULANIC ACID [Suspect]
     Active Substance: AMOXICILLIN\CLAVULANIC ACID
     Indication: PRODUCT USED FOR UNKNOWN INDICATION
     Dosage: UNK
     Route: 064
  2. NOLOTIL [Suspect]
     Active Substance: METAMIZOLE
     Indication: PRODUCT USED FOR UNKNOWN INDICATION
     Dosage: 2 G, TID
     Route: 064

REACTIONS (9)
  - Pulmonary hypertension [Recovering/Resolving]
  - Renal failure [Recovering/Resolving]
  - Foetal exposure during pregnancy [Recovering/Resolving]
  - Premature delivery [Unknown]
  - Oligohydramnios [Unknown]
  - Right ventricular hypertrophy [Recovering/Resolving]
  - Dyspnoea [Recovering/Resolving]
  - Hydrops foetalis [Recovering/Resolving]
  - Patent ductus arteriosus [Recovering/Resolving]
